FAERS Safety Report 20753675 (Version 1)
Quarter: 2022Q2

REPORT INFORMATION
  Report Type: Spontaneous
  Country: US (occurrence: None)
  Receive Date: 20220426
  Receipt Date: 20220426
  Transmission Date: 20220721
  Serious: No
  Sender: FDA-Public Use
  Company Number: US-ROCHE-2847794

PATIENT
  Sex: Female

DRUGS (2)
  1. ESBRIET [Suspect]
     Active Substance: PIRFENIDONE
     Indication: Idiopathic pulmonary fibrosis
     Route: 048
  2. ESBRIET [Suspect]
     Active Substance: PIRFENIDONE
     Route: 048

REACTIONS (5)
  - Nausea [Recovering/Resolving]
  - Vomiting [Recovered/Resolved]
  - Decreased appetite [Recovering/Resolving]
  - Photosensitivity reaction [Unknown]
  - Skin warm [Not Recovered/Not Resolved]

NARRATIVE: CASE EVENT DATE: 20210530
